FAERS Safety Report 7833820-1 (Version None)
Quarter: 2011Q4

REPORT INFORMATION
  Report Type: 
  Country: None (occurrence: None)
  Receive Date: 20111024
  Receipt Date: 20111018
  Transmission Date: 20120403
  Serious: Yes (Life-Threatening)
  Sender: FDA-Public Use
  Company Number: US-GLAXOSMITHKLINE-A0940072A

PATIENT
  Age: 53 Year
  Sex: Male
  Weight: 115 kg

DRUGS (2)
  1. ADVAIR DISKUS 100/50 [Suspect]
     Indication: CHRONIC OBSTRUCTIVE PULMONARY DISEASE
     Route: 055
     Dates: start: 20110221, end: 20110330
  2. UNKNOWN [Concomitant]

REACTIONS (3)
  - DEPRESSION [None]
  - BEDRIDDEN [None]
  - SUICIDAL IDEATION [None]
